FAERS Safety Report 20637736 (Version 1)
Quarter: 2022Q1

REPORT INFORMATION
  Report Type: Spontaneous
  Country: NL (occurrence: None)
  Receive Date: 20220325
  Receipt Date: 20220325
  Transmission Date: 20220423
  Serious: Yes (Other)
  Sender: FDA-Public Use
  Company Number: 2022A116292

PATIENT
  Sex: Male
  Weight: 86 kg

DRUGS (8)
  1. DAPAGLIFLOZIN [Suspect]
     Active Substance: DAPAGLIFLOZIN
     Indication: Myocardial infarction
     Dosage: 1D1T
     Route: 048
     Dates: start: 20220112, end: 20220119
  2. DAPAGLIFLOZIN [Suspect]
     Active Substance: DAPAGLIFLOZIN
     Indication: Type 2 diabetes mellitus
     Dosage: 1D1T
     Route: 048
     Dates: start: 20220112, end: 20220119
  3. CARBASPIRIN [Concomitant]
     Active Substance: CARBASPIRIN
     Dosage: SACHET (POWDER), 100 MG (MILLIGRAMS)
  4. INSULINE DEGLUDEC/LIRAGLUTIDE INJVL/ XULTOPHY [Concomitant]
     Dosage: INJECTION, 100 UNITS/3.6 MG/ML (MILLIGRAMS PER MILLILITER)
  5. BISOPROLOL [Concomitant]
     Active Substance: BISOPROLOL
     Dosage: TABLET, 5 MG (MILLIGRAM)
  6. OMEPRAZOL/PEDIPPI [Concomitant]
     Dosage: 1D40MG
  7. CRESTOR [Concomitant]
     Active Substance: ROSUVASTATIN CALCIUM
     Dosage: TABLET, 10 MG (MILLIGRAM)
  8. IRBESARTAN [Concomitant]
     Active Substance: IRBESARTAN
     Dosage: TABLET, 150 MG (MILLIGRAM)

REACTIONS (1)
  - Myalgia [Recovering/Resolving]
